FAERS Safety Report 5504210-1 (Version None)
Quarter: 2007Q4

REPORT INFORMATION
  Report Type: 
  Country: None (occurrence: None)
  Receive Date: 20071101
  Receipt Date: 20071026
  Transmission Date: 20080405
  Serious: Yes (Other)
  Sender: FDA-Public Use
  Company Number: B0493587A

PATIENT
  Age: 50 Year
  Sex: Female
  Weight: 80 kg

DRUGS (1)
  1. AUGMENTIN '125' [Suspect]
     Dosage: 1850MG PER DAY
     Route: 048
     Dates: start: 20070601, end: 20070601

REACTIONS (5)
  - HYPERSENSITIVITY [None]
  - PRURITUS [None]
  - RASH [None]
  - SKIN EXFOLIATION [None]
  - TOXIC SKIN ERUPTION [None]
